FAERS Safety Report 8291436-X (Version None)
Quarter: 2012Q2

REPORT INFORMATION
  Report Type: 
  Country: None (occurrence: None)
  Receive Date: 20120417
  Receipt Date: 20120405
  Transmission Date: 20120825
  Serious: Yes (Other)
  Sender: FDA-Public Use
  Company Number: CN-BAYER-2012-032929

PATIENT
  Age: 55 Year
  Sex: Female

DRUGS (2)
  1. GLUCOBAY [Suspect]
     Indication: DEPRESSION
     Dosage: 270 DF, ONCE
     Route: 048
     Dates: start: 20120404
  2. ALPRAZOLAM [Suspect]
     Indication: DEPRESSION
     Dosage: 100 DF, ONCE
     Route: 048
     Dates: start: 20120404

REACTIONS (2)
  - ABDOMINAL DISCOMFORT [None]
  - COMA [None]
